FAERS Safety Report 18517229 (Version 3)
Quarter: 2021Q4

REPORT INFORMATION
  Report Type: Report from Study
  Country: AR (occurrence: AR)
  Receive Date: 20201118
  Receipt Date: 20211020
  Transmission Date: 20220304
  Serious: Yes (Hospitalization, Other)
  Sender: FDA-Public Use
  Company Number: NVSC2020AR306459

PATIENT
  Sex: Male

DRUGS (1)
  1. COSENTYX [Suspect]
     Active Substance: SECUKINUMAB
     Indication: Psoriatic arthropathy
     Dosage: 150 MG, QMO
     Route: 058
     Dates: start: 20201019

REACTIONS (5)
  - Urinary tract infection [Unknown]
  - Parkinson^s disease [Not Recovered/Not Resolved]
  - Pyrexia [Unknown]
  - White blood cell count increased [Unknown]
  - Dehydration [Unknown]
